FAERS Safety Report 15550532 (Version 1)
Quarter: 2018Q4

REPORT INFORMATION
  Report Type: Report from Study
  Country: CA (occurrence: CA)
  Receive Date: 20181025
  Receipt Date: 20181025
  Transmission Date: 20190205
  Serious: Yes (Hospitalization)
  Sender: FDA-Public Use
  Company Number: CA-JNJFOC-20181030783

PATIENT
  Age: 68 Year
  Sex: Female

DRUGS (2)
  1. SIMPONI [Suspect]
     Active Substance: GOLIMUMAB
     Indication: COLITIS ULCERATIVE
     Dosage: STRENGTH = 50 MG
     Route: 058
     Dates: start: 20100808
  2. SIMPONI [Suspect]
     Active Substance: GOLIMUMAB
     Indication: RHEUMATOID ARTHRITIS
     Dosage: STRENGTH = 50 MG
     Route: 058
     Dates: start: 20100808

REACTIONS (3)
  - Staphylococcal sepsis [Recovering/Resolving]
  - Pneumonia [Recovering/Resolving]
  - Spinal disorder [Recovering/Resolving]

NARRATIVE: CASE EVENT DATE: 20180831
